FAERS Safety Report 6980484-5 (Version None)
Quarter: 2010Q3

REPORT INFORMATION
  Report Type: 
  Country: None (occurrence: None)
  Receive Date: 20100914
  Receipt Date: 20100830
  Transmission Date: 20110219
  Serious: Yes (Other)
  Sender: FDA-Public Use
  Company Number: PHHY2010US47975

PATIENT

DRUGS (6)
  1. RECLAST [Suspect]
     Indication: OSTEOPOROSIS
     Dosage: 5 MG
     Route: 042
     Dates: start: 20090801
  2. TECHNETIUM [Concomitant]
  3. NORCO [Concomitant]
     Indication: PAIN
     Dosage: QID
     Route: 048
  4. FENTANYL CITRATE [Concomitant]
     Indication: PAIN
     Dosage: 50 MCG
     Route: 062
  5. SOMA [Concomitant]
     Indication: PAIN
     Dosage: 350 MG, QID
     Route: 048
  6. LYRICA [Concomitant]
     Dosage: 75 MG, TID
     Route: 048

REACTIONS (6)
  - BONE DISORDER [None]
  - OSTEONECROSIS OF JAW [None]
  - PAIN IN JAW [None]
  - PERIODONTAL DISEASE [None]
  - PNEUMONIA KLEBSIELLA [None]
  - SKIN BACTERIAL INFECTION [None]
